FAERS Safety Report 9185528 (Version 3)
Quarter: 2013Q2

REPORT INFORMATION
  Report Type: Spontaneous
  Country: US (occurrence: US)
  Receive Date: 20130325
  Receipt Date: 20130613
  Transmission Date: 20140414
  Serious: Yes (Hospitalization)
  Sender: FDA-Public Use
  Company Number: US-BIOGENIDEC-2013BI026329

PATIENT
  Age: 33 Year
  Sex: Male

DRUGS (1)
  1. TYSABRI [Suspect]
     Indication: MULTIPLE SCLEROSIS
     Route: 042
     Dates: start: 20110721

REACTIONS (7)
  - Lower limb fracture [Unknown]
  - Deep vein thrombosis [Unknown]
  - Pulmonary embolism [Unknown]
  - Multiple sclerosis relapse [Recovered/Resolved]
  - Amnesia [Not Recovered/Not Resolved]
  - Dysarthria [Recovered/Resolved]
  - Tunnel vision [Recovered/Resolved]
